FAERS Safety Report 6311180-5 (Version None)
Quarter: 2009Q3

REPORT INFORMATION
  Report Type: 
  Country: None (occurrence: None)
  Receive Date: 20090817
  Receipt Date: 20090805
  Transmission Date: 20100115
  Serious: Yes (Other)
  Sender: FDA-Public Use
  Company Number: CH-NOVOPROD-290334

PATIENT
  Sex: Female
  Weight: 3.2 kg

DRUGS (7)
  1. NOVORAPID PENFILL [Suspect]
     Indication: GESTATIONAL DIABETES
     Route: 064
     Dates: start: 20080601, end: 20081014
  2. INSULATARD HM PENFILL [Suspect]
     Indication: GESTATIONAL DIABETES
     Route: 064
     Dates: start: 20080601, end: 20081014
  3. OMEPRAZOLE [Concomitant]
     Route: 064
     Dates: start: 20080508, end: 20080517
  4. FLAGYL [Concomitant]
     Route: 064
     Dates: start: 20080508, end: 20080517
  5. KLACID                             /00984601/ [Concomitant]
     Route: 064
     Dates: start: 20080508, end: 20080517
  6. DAFALGAN                           /00020001/ [Concomitant]
     Route: 064
  7. MORPHINE [Concomitant]
     Route: 064

REACTIONS (4)
  - HYPERBILIRUBINAEMIA [None]
  - JAUNDICE [None]
  - MACROCEPHALY [None]
  - MACROSOMIA [None]
